FAERS Safety Report 26048499 (Version 1)
Quarter: 2025Q4

REPORT INFORMATION
  Report Type: Spontaneous
  Country: US (occurrence: US)
  Receive Date: 20251114
  Receipt Date: 20251114
  Transmission Date: 20260118
  Serious: Yes (Other)
  Sender: NOVO NORDISK
  Company Number: US-NOVOPROD-1559767

PATIENT
  Age: 86 Year
  Sex: Male

DRUGS (2)
  1. NOVOLOG [Suspect]
     Active Substance: INSULIN ASPART
     Dosage: 24 IU, QD (6 UNITS AT MORNING, 8 UNITS LUNCH, 10 UNITS AT NIGHT)
     Route: 058
  2. NOVOLOG [Suspect]
     Active Substance: INSULIN ASPART
     Indication: Type 2 diabetes mellitus
     Dosage: 24 IU, QD (6 UNITS AT MORNING, 8 UNITS LUNCH, 10 UNITS AT NIGHT)
     Route: 058
     Dates: start: 2000

REACTIONS (4)
  - Macular degeneration [Not Recovered/Not Resolved]
  - Blood glucose increased [Unknown]
  - Drug ineffective [Not Recovered/Not Resolved]
  - Product quality issue [Not Recovered/Not Resolved]

NARRATIVE: CASE EVENT DATE: 20250101
